FAERS Safety Report 5525801-8 (Version None)
Quarter: 2007Q4

REPORT INFORMATION
  Report Type: 
  Country: None (occurrence: None)
  Receive Date: 20071126
  Receipt Date: 20071119
  Transmission Date: 20080405
  Serious: Yes (Hospitalization)
  Sender: FDA-Public Use
  Company Number: DE-WYE-G00636307

PATIENT
  Sex: Male

DRUGS (2)
  1. VENLAFAXINE HCL [Suspect]
     Route: 048
  2. MIRTAZAPINE [Concomitant]
     Dosage: UNKNOWN
     Route: 048
     Dates: end: 20071106

REACTIONS (4)
  - LIVER FUNCTION TEST ABNORMAL [None]
  - MYOCARDITIS [None]
  - NASOPHARYNGITIS [None]
  - OEDEMA [None]
